FAERS Safety Report 10529959 (Version 1)
Quarter: 2014Q4

REPORT INFORMATION
  Report Type: Spontaneous
  Country: JP (occurrence: None)
  Receive Date: 20141017
  Receipt Date: 20141017
  Transmission Date: 20150528
  Serious: Yes (Death, Life-Threatening)
  Sender: FDA-Public Use
  Company Number: FK201403992

PATIENT
  Age: 72 Year
  Sex: Female

DRUGS (11)
  1. REBAMIPIDE (REBAMIPIDE) [Concomitant]
  2. CEFOTIAM [Suspect]
     Active Substance: CEFOTIAM
     Indication: LOCALISED INFECTION
  3. ASPIRIN (ACETYLSALICYLIC ACID) [Concomitant]
     Active Substance: ASPIRIN
  4. AMLODIPINE [Concomitant]
     Active Substance: AMLODIPINE BESYLATE
  5. NATEGLINIDE (NATEGLINIDE) [Concomitant]
  6. FUROSEMIDE (FUROSEMIDE) [Concomitant]
     Active Substance: FUROSEMIDE
  7. WARFARIN (WARFARIN) [Concomitant]
     Active Substance: WARFARIN
  8. GENTAMICIN. [Suspect]
     Active Substance: GENTAMICIN
     Indication: LOCALISED INFECTION
  9. LANSOPRAZOLE (LANSOPRAZOLE) [Concomitant]
     Active Substance: LANSOPRAZOLE
  10. CANDESARTAN (CANDESARTAN) [Concomitant]
     Active Substance: CANDESARTAN
  11. NICORANDIL (NICORANDIL) [Concomitant]
     Active Substance: NICORANDIL

REACTIONS (9)
  - Multi-organ failure [None]
  - Methaemoglobinaemia [None]
  - Metabolic acidosis [None]
  - Decreased appetite [None]
  - Dehydration [None]
  - Blood pressure decreased [None]
  - Renal impairment [None]
  - Intravascular haemolysis [None]
  - Renal replacement therapy [None]
